FAERS Safety Report 17450719 (Version 1)
Quarter: 2020Q1

REPORT INFORMATION
  Report Type: Spontaneous
  Country: GR (occurrence: GR)
  Receive Date: 20200224
  Receipt Date: 20200224
  Transmission Date: 20200409
  Serious: Yes (Other)
  Sender: FDA-Public Use
  Company Number: NVSC2020GR047506

PATIENT
  Age: 42 Year
  Sex: Female

DRUGS (7)
  1. DEFERIPRONE [Suspect]
     Active Substance: DEFERIPRONE
     Dosage: UNK
     Route: 065
     Dates: start: 2019
  2. DEFERASIROX. [Suspect]
     Active Substance: DEFERASIROX
     Indication: PRODUCT USED FOR UNKNOWN INDICATION
     Dosage: UNK
     Route: 065
     Dates: start: 2017
  3. DEFEROXAMINE [Suspect]
     Active Substance: DEFEROXAMINE MESYLATE
     Indication: CHELATION THERAPY
     Dosage: UNK (MONOTHERAPY)
     Route: 065
     Dates: start: 2007
  4. DEFERASIROX. [Suspect]
     Active Substance: DEFERASIROX
     Dosage: 21 MG/KG (EVERY DAY /SECOND WEEK) (COMBINATION THERAPY OF DEFERSIROX AND DEFERIPRONE)
     Route: 065
     Dates: start: 2019
  5. DEFERIPRONE [Suspect]
     Active Substance: DEFERIPRONE
     Dosage: 50 MG/KG (DAY/ EVERY SECOND WEEK) (COMBINATION THERAPY OF DEFERSIROX AND DEFERIPRONE)
     Route: 065
     Dates: start: 2019
  6. DEFEROXAMINE [Suspect]
     Active Substance: DEFEROXAMINE MESYLATE
     Dosage: 160 MG/KG, QW (40 MG/KG X 4 TIMES A WEEK) (COMBOINED THERAPY WITH DEFERIPRONE)
     Route: 058
  7. DEFERIPRONE [Suspect]
     Active Substance: DEFERIPRONE
     Indication: CHELATION THERAPY
     Dosage: 100 MG/KG, QD
     Route: 065

REACTIONS (5)
  - Inappropriate schedule of product administration [Unknown]
  - Serum ferritin increased [Unknown]
  - Neutropenia [Unknown]
  - Blood iron abnormal [Recovering/Resolving]
  - Hepatosplenomegaly [Unknown]
